FAERS Safety Report 5413619-6 (Version None)
Quarter: 2007Q3

REPORT INFORMATION
  Report Type: 
  Country: None (occurrence: None)
  Receive Date: 20070814
  Receipt Date: 20070122
  Transmission Date: 20080115
  Serious: No
  Sender: FDA-Public Use
  Company Number: US-BRISTOL-MYERS SQUIBB COMPANY-13653696

PATIENT
  Sex: Male

DRUGS (2)
  1. GLUCOVANCE [Suspect]
     Dosage: 5/500MG.
  2. PLAVIX [Concomitant]

REACTIONS (1)
  - HYPERSENSITIVITY [None]
